FAERS Safety Report 9291445 (Version 3)
Quarter: 2013Q4

REPORT INFORMATION
  Report Type: Spontaneous
  Country: US (occurrence: US)
  Receive Date: 20130515
  Receipt Date: 20131231
  Transmission Date: 20140711
  Serious: No
  Sender: FDA-Public Use
  Company Number: US-009507513-1305USA003099

PATIENT
  Age: 16 Year
  Sex: Female
  Weight: 45.35 kg

DRUGS (2)
  1. IMPLANON [Suspect]
     Indication: CONTRACEPTION
     Dosage: 1 ROD, EVERY 3 YEARS
     Route: 059
     Dates: start: 20121220, end: 20131216
  2. IBUPROFEN [Concomitant]

REACTIONS (12)
  - Menstrual disorder [Unknown]
  - Weight decreased [Unknown]
  - Fatigue [Unknown]
  - Device breakage [Unknown]
  - Breast mass [Unknown]
  - Hormone level abnormal [Unknown]
  - Device dislocation [Recovered/Resolved]
  - Medical device complication [Recovered/Resolved]
  - Device difficult to use [Recovered/Resolved]
  - Product quality issue [Unknown]
  - Implant site fibrosis [Unknown]
  - Complication of device removal [Unknown]
